FAERS Safety Report 8439849-7 (Version None)
Quarter: 2012Q2

REPORT INFORMATION
  Report Type: 
  Country: None (occurrence: None)
  Receive Date: 20120323
  Receipt Date: 20110609
  Transmission Date: 20120825
  Serious: Yes (Other)
  Sender: FDA-Public Use
  Company Number: 163-21880-11061555

PATIENT
  Age: 84 Year
  Sex: Female
  Weight: 73.4827 kg

DRUGS (1)
  1. REVLIMID [Suspect]
     Indication: MULTIPLE MYELOMA
     Dosage: 15 MG, HS X 21 DAYS/OFF 7 DAYS, PO
     Route: 048
     Dates: start: 20110329, end: 20110607

REACTIONS (1)
  - RASH GENERALISED [None]
